FAERS Safety Report 18113452 (Version 1)
Quarter: 2020Q3

REPORT INFORMATION
  Report Type: Spontaneous
  Country: US (occurrence: US)
  Receive Date: 20200805
  Receipt Date: 20200805
  Transmission Date: 20201103
  Serious: Yes (Other)
  Sender: FDA-Public Use
  Company Number: None

PATIENT
  Age: 59 Year
  Sex: Female

DRUGS (1)
  1. TRIKAFTA [Suspect]
     Active Substance: ELEXACAFTOR\IVACAFTOR\TEZACAFTOR
     Indication: CYSTIC FIBROSIS
     Route: 048
     Dates: start: 20200211

REACTIONS (7)
  - Arthralgia [None]
  - Pain [None]
  - Loss of personal independence in daily activities [None]
  - Condition aggravated [None]
  - Joint swelling [None]
  - Inflammatory marker increased [None]
  - Finger deformity [None]

NARRATIVE: CASE EVENT DATE: 20200805
